FAERS Safety Report 6590619-4 (Version None)
Quarter: 2010Q1

REPORT INFORMATION
  Report Type: 
  Country: None (occurrence: None)
  Receive Date: 20100219
  Receipt Date: 20100218
  Transmission Date: 20100710
  Serious: Yes (Disabling)
  Sender: FDA-Public Use
  Company Number: A0842347A

PATIENT
  Age: 70 Year
  Sex: Male

DRUGS (4)
  1. RYTHMOL SR [Suspect]
     Indication: VENTRICULAR ARRHYTHMIA
     Dosage: 325MG TWICE PER DAY
     Route: 048
     Dates: start: 20091201
  2. BETA BLOCKER [Suspect]
     Indication: DRUG USE FOR UNKNOWN INDICATION
  3. FLECAINIDE [Suspect]
  4. VERAPAMIL [Concomitant]

REACTIONS (7)
  - CLONUS [None]
  - DYSTONIA [None]
  - ILL-DEFINED DISORDER [None]
  - MUSCULAR WEAKNESS [None]
  - MYOCLONUS [None]
  - RESPIRATORY DISORDER [None]
  - TREMOR [None]
